FAERS Safety Report 14529919 (Version 2)
Quarter: 2018Q3

REPORT INFORMATION
  Report Type: Spontaneous
  Country: US (occurrence: US)
  Receive Date: 20180214
  Receipt Date: 20180920
  Transmission Date: 20181010
  Serious: No
  Sender: FDA-Public Use
  Company Number: US-IGSA-GTI005421

PATIENT
  Age: 69 Year
  Sex: Female

DRUGS (2)
  1. EUCERIN                            /00021201/ [Concomitant]
     Active Substance: SALICYLIC ACID
     Dosage: UNK
  2. PROLASTIN?C [Suspect]
     Active Substance: .ALPHA.1-PROTEINASE INHIBITOR HUMAN
     Indication: ALPHA-1 ANTI-TRYPSIN DEFICIENCY
     Dosage: UNK, Q.WK.
     Route: 042
     Dates: start: 201603

REACTIONS (1)
  - Rash [Recovering/Resolving]

NARRATIVE: CASE EVENT DATE: 201704
